FAERS Safety Report 14044139 (Version 1)
Quarter: 2017Q4

REPORT INFORMATION
  Report Type: Spontaneous
  Country: US (occurrence: US)
  Receive Date: 20171004
  Receipt Date: 20171004
  Transmission Date: 20180321
  Serious: Yes (Hospitalization, Other)
  Sender: FDA-Public Use
  Company Number: US-ALLERGAN-1756316US

PATIENT
  Sex: Male

DRUGS (1)
  1. BOTOX [Suspect]
     Active Substance: ONABOTULINUMTOXINA
     Indication: BLADDER SPASM
     Dosage: UNK, SINGLE
     Route: 043
     Dates: start: 20170808, end: 20170808

REACTIONS (6)
  - Urinary tract infection [Unknown]
  - Ileus paralytic [Unknown]
  - Fatigue [Unknown]
  - Constipation [Unknown]
  - Gait disturbance [Unknown]
  - Drug ineffective [Unknown]
